FAERS Safety Report 7450570-4 (Version None)
Quarter: 2011Q2

REPORT INFORMATION
  Report Type: 
  Country: None (occurrence: None)
  Receive Date: 20110429
  Receipt Date: 20110429
  Transmission Date: 20111010
  Serious: No
  Sender: FDA-Public Use
  Company Number: None

PATIENT
  Sex: Male

DRUGS (2)
  1. VITAMIN D [Suspect]
     Indication: CROHN'S DISEASE
     Dosage: 50,000U EVERY 2 WEEKS ORAL
     Route: 048
     Dates: start: 20110301
  2. HUMIRA [Suspect]
     Indication: CROHN'S DISEASE
     Dosage: 160MG, THEN 80MG TWO WEEKS LATER EVERY 2 WEEKS SUBCUTANEOUSLY
     Route: 058
     Dates: start: 20110406

REACTIONS (7)
  - DYSPEPSIA [None]
  - DIARRHOEA [None]
  - TREMOR [None]
  - ABDOMINAL DISCOMFORT [None]
  - DRUG INTERACTION [None]
  - CONSTIPATION [None]
  - HEADACHE [None]
